FAERS Safety Report 4494238-5 (Version None)
Quarter: 2004Q4

REPORT INFORMATION
  Report Type: 
  Country: None (occurrence: None)
  Receive Date: 20041102
  Receipt Date: 20041018
  Transmission Date: 20050328
  Serious: Yes (Death)
  Sender: FDA-Public Use
  Company Number: 2004-DE-05498GD

PATIENT
  Age: 31 Year
  Sex: 0

DRUGS (2)
  1. MELOXICAM (MELOXICAM) (NR) (MELOXICAM) [Suspect]
     Route: 048
  2. AMITRIPTYLINE HCL [Suspect]
     Dosage: PO
     Route: 048

REACTIONS (3)
  - COMPLETED SUICIDE [None]
  - DRUG ABUSER [None]
  - OVERDOSE [None]
